FAERS Safety Report 15819390 (Version 1)
Quarter: 2019Q1

REPORT INFORMATION
  Report Type: Spontaneous
  Country: DE (occurrence: DE)
  Receive Date: 20190114
  Receipt Date: 20190114
  Transmission Date: 20190417
  Serious: Yes (Hospitalization)
  Sender: FDA-Public Use
  Company Number: DE-ASTELLAS-2019US000758

PATIENT
  Age: 53 Year
  Sex: Female

DRUGS (4)
  1. TACROLIMUS. [Suspect]
     Active Substance: TACROLIMUS
     Indication: LIVER TRANSPLANT
     Dosage: UNK UNK, UNKNOWN FREQ.
     Route: 065
  2. PREDNISONE. [Concomitant]
     Active Substance: PREDNISONE
     Indication: LIVER TRANSPLANT
     Dosage: UNK UNK, UNKNOWN FREQ.
     Route: 065
  3. MYCOPHENOLATE MOFETIL. [Concomitant]
     Active Substance: MYCOPHENOLATE MOFETIL
     Indication: LIVER TRANSPLANT
     Dosage: UNK UNK, UNKNOWN FREQ.
     Route: 065
  4. CASPOFUNGIN [Concomitant]
     Active Substance: CASPOFUNGIN
     Indication: ANTIFUNGAL PROPHYLAXIS
     Dosage: UNK UNK, UNKNOWN FREQ.
     Route: 065

REACTIONS (10)
  - Hepatic lesion [Recovering/Resolving]
  - Cholangitis [Recovered/Resolved]
  - Candida infection [Recovered/Resolved]
  - Klebsiella infection [Recovered/Resolved]
  - Peritonitis [Recovered/Resolved]
  - Streptococcal infection [Recovered/Resolved]
  - Clostridial infection [Recovered/Resolved]
  - Enterococcal infection [Recovered/Resolved]
  - Escherichia infection [Recovered/Resolved]
  - Perihepatic abscess [Recovered/Resolved]
